FAERS Safety Report 14869964 (Version 1)
Quarter: 2018Q2

REPORT INFORMATION
  Report Type: Spontaneous
  Country: IT (occurrence: IT)
  Receive Date: 20180509
  Receipt Date: 20180509
  Transmission Date: 20180711
  Serious: Yes (Other)
  Sender: FDA-Public Use
  Company Number: IT-ELI_LILLY_AND_COMPANY-IT201805000642

PATIENT
  Age: 68 Year
  Sex: Female

DRUGS (9)
  1. SIMVASTATIN. [Concomitant]
     Active Substance: SIMVASTATIN
     Indication: BLOOD CHOLESTEROL
  2. FREQUIL [Concomitant]
     Indication: TACHYCARDIA
  3. NATURAL VITAMIN D [Concomitant]
     Indication: PRODUCT USED FOR UNKNOWN INDICATION
  4. PRAZENE [Concomitant]
     Active Substance: PRAZEPAM
     Indication: ANXIETY
  5. PANTOPAN [Concomitant]
     Active Substance: PANTOPRAZOLE SODIUM
     Indication: HIATUS HERNIA
  6. PRADAXA [Concomitant]
     Active Substance: DABIGATRAN ETEXILATE MESYLATE
     Indication: ANTICOAGULANT THERAPY
  7. DIBASE [Concomitant]
     Active Substance: CHOLECALCIFEROL
     Indication: PRODUCT USED FOR UNKNOWN INDICATION
  8. FORSTEO 250UG/ML [Suspect]
     Active Substance: TERIPARATIDE
     Indication: THYROID DISORDER
     Dosage: UNK
     Route: 065
     Dates: start: 20180215
  9. CIPRALEX [Concomitant]
     Active Substance: ESCITALOPRAM OXALATE
     Indication: PRODUCT USED FOR UNKNOWN INDICATION

REACTIONS (5)
  - Abdominal distension [Unknown]
  - Crying [Unknown]
  - Off label use [Unknown]
  - Feeling abnormal [Unknown]
  - Morbid thoughts [Recovering/Resolving]

NARRATIVE: CASE EVENT DATE: 20180215
